FAERS Safety Report 14365234 (Version 1)
Quarter: 2018Q1

REPORT INFORMATION
  Report Type: Spontaneous
  Country: FR (occurrence: FR)
  Receive Date: 20180108
  Receipt Date: 20180108
  Transmission Date: 20180509
  Serious: Yes (Other)
  Sender: FDA-Public Use
  Company Number: FR-MERCK KGAA-2039593

PATIENT
  Age: 57 Year
  Sex: Female
  Weight: 93 kg

DRUGS (2)
  1. EUTHYRAL (NOVOTHYRAL) [Concomitant]
     Active Substance: LEVOTHYROXINE SODIUM\LIOTHYRONINE SODIUM
     Route: 048
     Dates: start: 20170903
  2. NOVOTHYROX [Suspect]
     Active Substance: LEVOTHYROXINE SODIUM
     Indication: HYPOTHYROIDISM
     Route: 048
     Dates: start: 201705, end: 20170902

REACTIONS (7)
  - Weight increased [Not Recovered/Not Resolved]
  - Disturbance in attention [Recovered/Resolved]
  - Palpitations [Recovering/Resolving]
  - Asthenia [Recovered/Resolved]
  - Headache [Recovered/Resolved]
  - Hyperhidrosis [Recovered/Resolved]
  - Blood thyroid stimulating hormone decreased [Recovered/Resolved]

NARRATIVE: CASE EVENT DATE: 201706
